FAERS Safety Report 13124517 (Version 4)
Quarter: 2017Q3

REPORT INFORMATION
  Report Type: Spontaneous
  Country: US (occurrence: US)
  Receive Date: 20170118
  Receipt Date: 20170710
  Transmission Date: 20171127
  Serious: Yes (Other)
  Sender: FDA-Public Use
  Company Number: US-PFIZER INC-2017018048

PATIENT
  Age: 66 Year
  Sex: Male
  Weight: 69.4 kg

DRUGS (6)
  1. DOCETAXEL. [Suspect]
     Active Substance: DOCETAXEL
     Indication: BREAST CANCER
     Dosage: 75 MG/M2, CYCLIC (21 DAYS X 3 CYCLES)
     Route: 042
     Dates: start: 20130311, end: 20130422
  2. COMPAZINE [Concomitant]
     Active Substance: PROCHLORPERAZINE MALEATE
     Indication: NAUSEA
     Dosage: UNK
     Dates: start: 20130311
  3. ATIVAN [Concomitant]
     Active Substance: LORAZEPAM
     Dosage: UNK
     Dates: start: 20130311
  4. CYTOXAN [Suspect]
     Active Substance: CYCLOPHOSPHAMIDE
     Indication: BREAST CANCER
     Dosage: 600 MG/M2, CYCLIC (21 DAYS X 3 CYCLES) TOTAL 3 CYCLES
     Route: 042
     Dates: start: 20130311, end: 20130422
  5. TAXOTERE [Suspect]
     Active Substance: DOCETAXEL
     Indication: BREAST CANCER
     Dosage: 75 MG/M2, CYCLIC (EVERY 21DAYS X 3 CYCLES) TOTAL 3 CYCLES
     Route: 042
     Dates: start: 20130311, end: 20130422
  6. TAMOXIFEN [Suspect]
     Active Substance: TAMOXIFEN
     Indication: BREAST CANCER
     Dosage: 20 MG, DAILY, (1 IN 1 D)
     Dates: start: 20130924, end: 20150729

REACTIONS (13)
  - Peripheral swelling [Unknown]
  - Osteolysis [Unknown]
  - Pericardial effusion [Recovering/Resolving]
  - Axillary mass [Unknown]
  - Skin hypertrophy [Unknown]
  - Fatigue [Recovered/Resolved]
  - Inflammation [Unknown]
  - Lymphadenopathy [Unknown]
  - Necrosis [Unknown]
  - Neoplasm progression [Recovering/Resolving]
  - Breast inflammation [Unknown]
  - Lethargy [Recovered/Resolved]
  - Lymphoedema [Unknown]

NARRATIVE: CASE EVENT DATE: 20130417
